FAERS Safety Report 5196242-0 (Version None)
Quarter: 2007Q1

REPORT INFORMATION
  Report Type: 
  Country: None (occurrence: None)
  Receive Date: 20070102
  Receipt Date: 20061221
  Transmission Date: 20070707
  Serious: Yes (Hospitalization)
  Sender: FDA-Public Use
  Company Number: GB-PFIZER INC-2006130563

PATIENT
  Age: 79 Year
  Sex: Male

DRUGS (5)
  1. ZYVOX [Suspect]
     Indication: LOWER RESPIRATORY TRACT INFECTION
     Route: 042
  2. ZYVOX [Suspect]
     Indication: SEPSIS
  3. IMIPENEM [Suspect]
  4. RAMIPRIL [Suspect]
  5. DRUG, UNSPECIFIED [Concomitant]

REACTIONS (1)
  - BLOOD POTASSIUM INCREASED [None]
